FAERS Safety Report 6223086-0 (Version None)
Quarter: 2009Q2

REPORT INFORMATION
  Report Type: 
  Country: None (occurrence: None)
  Receive Date: 20090611
  Receipt Date: 20090601
  Transmission Date: 20091009
  Serious: Yes (Hospitalization)
  Sender: FDA-Public Use
  Company Number: TH-ROCHE-635623

PATIENT
  Sex: Female
  Weight: 53 kg

DRUGS (12)
  1. METHOXY POLYETHYLENE GLYCOL-EPOETIN BETA [Suspect]
     Dosage: DOSAGE FORM REPORTED AS PREFILLED SYRINGE (PFS) AND TAKEN AS INJECTABLE AS PER PROTOCOL.
     Route: 058
     Dates: end: 20090408
  2. METHOXY POLYETHYLENE GLYCOL-EPOETIN BETA [Suspect]
     Route: 058
     Dates: start: 20090422
  3. METHOXY POLYETHYLENE GLYCOL-EPOETIN BETA [Suspect]
     Route: 058
  4. FOLIC ACID [Concomitant]
     Dates: start: 19990819
  5. Z-BEC [Concomitant]
     Dosage: TOTAL DAILY DOSE REPORTED AS 1 TAB.
     Dates: start: 20050606
  6. CALCIUM ACETATE [Concomitant]
     Dosage: DRUG NAME REPORTED AS CA ACETATE.
     Dates: start: 20050503
  7. NA BICARBONATE [Concomitant]
     Dates: start: 20051219
  8. PRAZOSIN HCL [Concomitant]
     Dates: start: 20070523
  9. AMLODIPINE [Concomitant]
     Dates: start: 20080627
  10. FE FUMARATE [Concomitant]
     Dates: start: 20070819
  11. LEVOTHYROXINE SODIUM [Concomitant]
     Dosage: DRUG NAME REPORTED AS ANHYDROUS THYROXINE NA.
     Dates: start: 20030911
  12. VITAMINE D [Concomitant]
     Dosage: DRUG NAME REPORTED AS ACTIVE VITAMIN D.
     Dates: start: 20000815

REACTIONS (3)
  - ACUTE MYOCARDIAL INFARCTION [None]
  - PUBIC RAMI FRACTURE [None]
  - SEPSIS [None]
